FAERS Safety Report 25471124 (Version 1)
Quarter: 2025Q2

REPORT INFORMATION
  Report Type: Report from Study
  Country: US (occurrence: US)
  Receive Date: 20250624
  Receipt Date: 20250624
  Transmission Date: 20250717
  Serious: Yes (Hospitalization)
  Sender: SERVIER
  Company Number: US-SERVIER-S25008638

PATIENT

DRUGS (1)
  1. VORASIDENIB [Suspect]
     Active Substance: VORASIDENIB
     Indication: Bone cancer
     Dosage: 40 MG, QD
     Route: 048
     Dates: start: 20250201

REACTIONS (4)
  - Muscular weakness [Unknown]
  - Weight decreased [Unknown]
  - Eating disorder [Unknown]
  - Taste disorder [Unknown]

NARRATIVE: CASE EVENT DATE: 20250101
